FAERS Safety Report 4592767-7 (Version None)
Quarter: 2005Q1

REPORT INFORMATION
  Report Type: 
  Country: None (occurrence: None)
  Receive Date: 20050228
  Receipt Date: 20041019
  Transmission Date: 20050727
  Serious: Yes (Hospitalization, Other)
  Sender: FDA-Public Use
  Company Number: FR-NOVOPROD-239932

PATIENT
  Age: 61 Year
  Sex: Female
  Weight: 60 kg

DRUGS (3)
  1. ACTIVELLE [Suspect]
     Indication: ILL-DEFINED DISORDER
     Dosage: 1 TAB, QD
     Dates: start: 20040201, end: 20040221
  2. CLIMENE [Concomitant]
     Indication: ILL-DEFINED DISORDER
     Dosage: 1 TAB, QD
     Route: 048
     Dates: start: 19960509, end: 20040125
  3. LEVOTHYROX [Concomitant]
     Route: 048
     Dates: end: 20040221

REACTIONS (5)
  - ARTHRALGIA [None]
  - BODY TEMPERATURE INCREASED [None]
  - CHEST WALL PAIN [None]
  - PAIN IN EXTREMITY [None]
  - PULMONARY EMBOLISM [None]
